FAERS Safety Report 6331968-4 (Version None)
Quarter: 2009Q3

REPORT INFORMATION
  Report Type: 
  Country: None (occurrence: None)
  Receive Date: 20090828
  Receipt Date: 20090826
  Transmission Date: 20100115
  Serious: Yes (Hospitalization)
  Sender: FDA-Public Use
  Company Number: US-BIOGENIDEC-2006BI006582

PATIENT
  Age: 49 Year
  Sex: Female

DRUGS (3)
  1. AVONEX [Suspect]
     Indication: MULTIPLE SCLEROSIS
     Route: 030
     Dates: start: 20090227, end: 20090626
  2. AVONEX [Suspect]
     Route: 030
     Dates: start: 20030101
  3. AVONEX [Suspect]
     Route: 030
     Dates: start: 20040223, end: 20080216

REACTIONS (8)
  - CHILLS [None]
  - DYSPNOEA [None]
  - HYPOTONIA [None]
  - LOWER RESPIRATORY TRACT INFECTION FUNGAL [None]
  - LUNG INFECTION [None]
  - MUSCULAR WEAKNESS [None]
  - PNEUMONIA [None]
  - PNEUMONIA VIRAL [None]
